FAERS Safety Report 19670516 (Version 4)
Quarter: 2022Q3

REPORT INFORMATION
  Report Type: Report from Study
  Country: US (occurrence: US)
  Receive Date: 20210806
  Receipt Date: 20220815
  Transmission Date: 20221027
  Serious: Yes (Other)
  Sender: FDA-Public Use
  Company Number: US-TAKEDA-US202000954

PATIENT
  Age: 39 Year
  Sex: Female

DRUGS (1)
  1. HUMAN IMMUNOGLOBULIN G [Suspect]
     Active Substance: HUMAN IMMUNOGLOBULIN G
     Indication: Primary immunodeficiency syndrome
     Dosage: UNK
     Route: 058

REACTIONS (7)
  - Hypothyroidism [Unknown]
  - Malaise [Unknown]
  - Post-acute COVID-19 syndrome [Unknown]
  - Postural orthostatic tachycardia syndrome [Unknown]
  - COVID-19 [Unknown]
  - Cardiac disorder [Unknown]
  - Herpes zoster [Unknown]

NARRATIVE: CASE EVENT DATE: 20200301
